FAERS Safety Report 19429119 (Version 1)
Quarter: 2021Q2

REPORT INFORMATION
  Report Type: Spontaneous
  Country: FR (occurrence: FR)
  Receive Date: 20210617
  Receipt Date: 20210617
  Transmission Date: 20210717
  Serious: Yes (Hospitalization)
  Sender: FDA-Public Use
  Company Number: FR-ACCORD-228135

PATIENT
  Age: 61 Year
  Sex: Male
  Weight: 93 kg

DRUGS (5)
  1. ESCITALOPRAM [Suspect]
     Active Substance: ESCITALOPRAM OXALATE
     Indication: DEPRESSION
     Dosage: 10 MG / DAY
     Route: 048
     Dates: start: 202103, end: 20210331
  2. TERALITHE [Interacting]
     Active Substance: LITHIUM CARBONATE
     Indication: BIPOLAR DISORDER
     Dosage: 1200 MG 1 FOIS PAR JOUR
     Route: 048
     Dates: start: 1998, end: 20210331
  3. COAPROV [HYDROCHLOROTHIAZIDE\IRBESARTAN] [Interacting]
     Active Substance: HYDROCHLOROTHIAZIDE\IRBESARTAN
     Indication: HYPERTENSION
     Dosage: 1 CP DE 300/25 MG TOUS LES JOURS
     Route: 048
     Dates: end: 20210401
  4. ATORVASTATIN [Concomitant]
     Active Substance: ATORVASTATIN
  5. FEBUXOSTAT. [Concomitant]
     Active Substance: FEBUXOSTAT

REACTIONS (7)
  - Bradycardia [Recovered/Resolved]
  - Tremor [Recovered/Resolved]
  - Antipsychotic drug level increased [Recovered/Resolved]
  - Balance disorder [Recovered/Resolved]
  - Amnesia [Recovered/Resolved]
  - Confusional state [Recovered/Resolved]
  - Dysarthria [Recovered/Resolved]

NARRATIVE: CASE EVENT DATE: 202103
